FAERS Safety Report 9519676 (Version 1)
Quarter: 2013Q1

REPORT INFORMATION
  Report Type: Spontaneous
  Country: US (occurrence: None)
  Receive Date: 20130305
  Receipt Date: 20130305
  Transmission Date: 20140127
  Serious: Yes (Hospitalization, Other)
  Sender: FDA-Public Use
  Company Number: 163-21880-12122942

PATIENT
  Age: 60 Year
  Sex: Male

DRUGS (1)
  1. REVLIMID [Suspect]
     Indication: PLASMA CELL MYELOMA
     Dosage: 25 MG, 1 IN 1 D, PO
     Route: 048
     Dates: start: 2011

REACTIONS (7)
  - Plasmacytoma [None]
  - Jugular vein thrombosis [None]
  - Abdominal discomfort [None]
  - Local swelling [None]
  - Malaise [None]
  - Fatigue [None]
  - Pyrexia [None]
